FAERS Safety Report 20158487 (Version 2)
Quarter: 2022Q1

REPORT INFORMATION
  Report Type: Spontaneous
  Country: JP (occurrence: JP)
  Receive Date: 20211207
  Receipt Date: 20220120
  Transmission Date: 20220423
  Serious: Yes (Other)
  Sender: FDA-Public Use
  Company Number: JP-EAGLE PHARMACEUTICALS, INC.-JP-2021EAG000286

PATIENT
  Age: 64 Year
  Sex: Female

DRUGS (13)
  1. BENDAMUSTINE HYDROCHLORIDE [Suspect]
     Active Substance: BENDAMUSTINE HYDROCHLORIDE
     Indication: Diffuse large B-cell lymphoma
     Dosage: UNK, (CYCLE 1 BR THERAPY)
     Route: 041
     Dates: start: 202104
  2. BENDAMUSTINE HYDROCHLORIDE [Suspect]
     Active Substance: BENDAMUSTINE HYDROCHLORIDE
     Dosage: UNK, (CYCLE 2 BR THERAPY)
     Route: 041
     Dates: start: 202106
  3. BENDAMUSTINE HYDROCHLORIDE [Suspect]
     Active Substance: BENDAMUSTINE HYDROCHLORIDE
     Dosage: 60 MG/M2, (CYCLE 1 PBR THERAPY)
     Route: 041
     Dates: start: 20210714
  4. BENDAMUSTINE HYDROCHLORIDE [Suspect]
     Active Substance: BENDAMUSTINE HYDROCHLORIDE
     Dosage: 60 MG/M2, (CYCLE 2 PBR THERAPY)
     Route: 041
     Dates: start: 20210804
  5. BENDAMUSTINE HYDROCHLORIDE [Suspect]
     Active Substance: BENDAMUSTINE HYDROCHLORIDE
     Dosage: 60 MG/M2, (CYCLE 3 PBR THERAPY)
     Route: 041
     Dates: start: 20210901
  6. RITUXAN [Concomitant]
     Active Substance: RITUXIMAB
     Indication: Diffuse large B-cell lymphoma
     Dosage: UNK, (CYCLE 1 BR THERAPY)
     Route: 041
     Dates: start: 202104
  7. RITUXAN [Concomitant]
     Active Substance: RITUXIMAB
     Dosage: UNK, (CYCLE 2 BR THERAPY)
     Route: 041
     Dates: start: 202106
  8. RITUXAN [Concomitant]
     Active Substance: RITUXIMAB
     Dosage: 460 MG, (CYCLE 1 PBR THERAPY)
     Route: 041
     Dates: start: 20210713
  9. RITUXAN [Concomitant]
     Active Substance: RITUXIMAB
     Dosage: 460 MG, (CYCLE 2 PBR THERAPY)
     Route: 041
     Dates: start: 20210803
  10. RITUXAN [Concomitant]
     Active Substance: RITUXIMAB
     Dosage: 460 MG, (CYCLE 3 PBR THERAPY)
     Route: 041
     Dates: start: 20210831
  11. POLATUZUMAB VEDOTIN [Concomitant]
     Active Substance: POLATUZUMAB VEDOTIN
     Indication: Diffuse large B-cell lymphoma
     Dosage: 66 MG, (CYCLE 1 PBR THERAPY)
     Route: 041
     Dates: start: 20210714
  12. POLATUZUMAB VEDOTIN [Concomitant]
     Active Substance: POLATUZUMAB VEDOTIN
     Dosage: 66 MG, (CYCLE 2 PBR THERAPY)
     Route: 041
     Dates: start: 20210804
  13. POLATUZUMAB VEDOTIN [Concomitant]
     Active Substance: POLATUZUMAB VEDOTIN
     Dosage: 66 MG, (CYCLE 3 PBR THERAPY)
     Route: 041
     Dates: start: 20210901

REACTIONS (7)
  - Neutropenia [Unknown]
  - Febrile neutropenia [Unknown]
  - Myelosuppression [Unknown]
  - Thrombocytopenia [Unknown]
  - Pneumocystis jirovecii pneumonia [Unknown]
  - Anaemia [Unknown]
  - Oral candidiasis [Unknown]

NARRATIVE: CASE EVENT DATE: 20210101
